FAERS Safety Report 4601701-2 (Version None)
Quarter: 2005Q1

REPORT INFORMATION
  Report Type: 
  Country: None (occurrence: None)
  Receive Date: 20050131
  Receipt Date: 20040924
  Transmission Date: 20050727
  Serious: No
  Sender: FDA-Public Use
  Company Number: 200416978US

PATIENT
  Age: 59 Year
  Sex: Male
  Weight: 113 kg

DRUGS (1)
  1. KETEK [Suspect]
     Indication: BRONCHITIS
     Dosage: 400 MG QD
     Dates: start: 20040909, end: 20050105

REACTIONS (1)
  - DRUG INEFFECTIVE [None]
